FAERS Safety Report 5391686-6 (Version None)
Quarter: 2007Q3

REPORT INFORMATION
  Report Type: 
  Country: None (occurrence: None)
  Receive Date: 20070717
  Receipt Date: 20070705
  Transmission Date: 20080115
  Serious: Yes (Other)
  Sender: FDA-Public Use
  Company Number: S07-GER-02997-01

PATIENT
  Age: 68 Year
  Sex: Female

DRUGS (4)
  1. ESCITALOPRAM OXALATE [Suspect]
     Dosage: 10 MG QD; PO
     Route: 048
     Dates: start: 20061130, end: 20061215
  2. SERTRALINE [Suspect]
     Dosage: 150 MG QD; PO
     Route: 048
  3. CLOZAPINE [Concomitant]
  4. VALPROATE SODIUM [Concomitant]

REACTIONS (1)
  - PARKINSONISM [None]
